FAERS Safety Report 22245046 (Version 1)
Quarter: 2023Q2

REPORT INFORMATION
  Report Type: Other
  Country: CA (occurrence: CA)
  Receive Date: 20230424
  Receipt Date: 20230424
  Transmission Date: 20230721
  Serious: Yes (Other)
  Sender: FDA-Public Use
  Company Number: CA-APOTEX-2023AP007059

PATIENT
  Age: 61 Year
  Sex: Female
  Weight: 78.005 kg

DRUGS (1)
  1. METFORMIN [Suspect]
     Active Substance: METFORMIN HYDROCHLORIDE
     Indication: Diabetes mellitus
     Dosage: 850 MILLIGRAM, TID
     Route: 048

REACTIONS (2)
  - Diabetes mellitus inadequate control [Recovered/Resolved]
  - Pruritus [Recovered/Resolved]
